FAERS Safety Report 10094451 (Version 1)
Quarter: 2014Q2

REPORT INFORMATION
  Report Type: Spontaneous
  Country: GB (occurrence: GB)
  Receive Date: 20140422
  Receipt Date: 20140422
  Transmission Date: 20141212
  Serious: Yes (Death, Other)
  Sender: FDA-Public Use
  Company Number: GB-JNJFOC-20140406596

PATIENT
  Sex: 0

DRUGS (6)
  1. DOXORUBICIN [Suspect]
     Indication: SARCOMA METASTATIC
     Route: 042
  2. DOXORUBICIN [Suspect]
     Indication: SARCOMA METASTATIC
     Route: 042
  3. IFOSFAMIDE [Suspect]
     Indication: SARCOMA METASTATIC
     Route: 065
  4. MESNA [Suspect]
     Indication: SARCOMA METASTATIC
     Route: 042
  5. MESNA [Suspect]
     Indication: SARCOMA METASTATIC
     Route: 042
  6. PEGFILGRASTIM [Suspect]
     Indication: SARCOMA METASTATIC
     Dosage: DAY 5
     Route: 058

REACTIONS (14)
  - Death [Fatal]
  - Infection [Fatal]
  - Sarcoma metastatic [Fatal]
  - Toxicity to various agents [Fatal]
  - Pulmonary embolism [Fatal]
  - Vomiting [Unknown]
  - Renal disorder [Unknown]
  - Leukopenia [Unknown]
  - Nausea [Unknown]
  - Anaemia [Unknown]
  - Neutropenia [Unknown]
  - Febrile neutropenia [Unknown]
  - Thrombocytopenia [Unknown]
  - Off label use [Unknown]
